FAERS Safety Report 16055265 (Version 1)
Quarter: 2019Q1

REPORT INFORMATION
  Report Type: Spontaneous
  Country: LV (occurrence: LV)
  Receive Date: 20190311
  Receipt Date: 20190311
  Transmission Date: 20190418
  Serious: Yes (Other)
  Sender: FDA-Public Use
  Company Number: LV-SUN PHARMACEUTICAL INDUSTRIES LTD-2019R1-201121

PATIENT
  Age: 22 Year
  Sex: Female

DRUGS (3)
  1. LABETALOL [Suspect]
     Active Substance: LABETALOL\LABETALOL HYDROCHLORIDE
     Indication: PRE-ECLAMPSIA
     Dosage: UNK
     Route: 065
  2. MANNITOL. [Concomitant]
     Active Substance: MANNITOL
     Indication: PRODUCT USED FOR UNKNOWN INDICATION
     Dosage: UNK
     Route: 065
  3. METHYLDOPA. [Suspect]
     Active Substance: METHYLDOPA
     Indication: PRE-ECLAMPSIA
     Dosage: UNK
     Route: 065

REACTIONS (5)
  - Headache [Unknown]
  - Dyspnoea [Unknown]
  - Drug ineffective [Unknown]
  - Premature delivery [Unknown]
  - Exposure during pregnancy [Unknown]
